FAERS Safety Report 17804970 (Version 2)
Quarter: 2020Q2

REPORT INFORMATION
  Report Type: Spontaneous
  Country: CN (occurrence: CN)
  Receive Date: 20200520
  Receipt Date: 20200529
  Transmission Date: 20200714
  Serious: No
  Sender: FDA-Public Use
  Company Number: CN-SHIRE-CN202016186

PATIENT

DRUGS (1)
  1. HUMAN ALBUMIN [Suspect]
     Active Substance: ALBUMIN HUMAN
     Indication: BRAIN OEDEMA
     Dosage: 10 BAGS
     Route: 042
     Dates: start: 20200508, end: 20200508

REACTIONS (3)
  - Dyspnoea [Recovered/Resolved]
  - Infusion related reaction [Unknown]
  - Chest discomfort [Recovered/Resolved]

NARRATIVE: CASE EVENT DATE: 20200508
